FAERS Safety Report 12778593 (Version 1)
Quarter: 2016Q3

REPORT INFORMATION
  Report Type: Spontaneous
  Country: FR (occurrence: FR)
  Receive Date: 20160926
  Receipt Date: 20160926
  Transmission Date: 20161109
  Serious: Yes (Other)
  Sender: FDA-Public Use
  Company Number: FR-ORION CORPORATION ORION PHARMA-TREX2014-0199

PATIENT
  Age: 59 Year
  Sex: Female

DRUGS (3)
  1. IMETH [Suspect]
     Active Substance: METHOTREXATE SODIUM
     Indication: RHEUMATOID ARTHRITIS
     Dosage: 1 TABLET IN THE MORNING AND 0.75 TABLET (I.E. 7.5 MG) IN EVENING
     Route: 065
  2. CORTANCYL [Concomitant]
     Active Substance: PREDNISONE
     Dosage: STRENGTH: 5 MG
     Route: 065
  3. FOLIC ACID. [Concomitant]
     Active Substance: FOLIC ACID
     Route: 065

REACTIONS (2)
  - Rectal cancer [Not Recovered/Not Resolved]
  - Metastases to liver [Unknown]

NARRATIVE: CASE EVENT DATE: 201312
